FAERS Safety Report 10170263 (Version 1)
Quarter: 2014Q2

REPORT INFORMATION
  Report Type: Spontaneous
  Country: GB (occurrence: GB)
  Receive Date: 20140513
  Receipt Date: 20140513
  Transmission Date: 20141212
  Serious: Yes (Hospitalization, Disabling)
  Sender: FDA-Public Use
  Company Number: GB-WATSON-2014-10174

PATIENT
  Age: 48 Year
  Sex: Male

DRUGS (5)
  1. BENDROFLUMETHIAZIDE (UNKNOWN) [Suspect]
     Indication: HYPERTENSION
     Dosage: UNKNOWN
     Route: 065
  2. DESMOPRESSIN (UNKNOWN) [Suspect]
     Indication: ENURESIS
     Dosage: UNKNOWN
     Route: 065
  3. SODIUM CHLORIDE [Suspect]
     Indication: HYPONATRAEMIA
     Dosage: 0.9%
     Route: 041
  4. THIAMINE [Concomitant]
     Indication: PRODUCT USED FOR UNKNOWN INDICATION
     Dosage: UNKNOWN
     Route: 051
  5. CHLORDIAZEPOXIDE [Concomitant]
     Indication: PRODUCT USED FOR UNKNOWN INDICATION
     Dosage: UNKNOWN
     Route: 048

REACTIONS (4)
  - Osmotic demyelination syndrome [Recovered/Resolved with Sequelae]
  - Withdrawal syndrome [Recovered/Resolved with Sequelae]
  - Hyponatraemia [Recovered/Resolved]
  - Medication error [Recovered/Resolved with Sequelae]
